FAERS Safety Report 7804570-2 (Version None)
Quarter: 2011Q4

REPORT INFORMATION
  Report Type: 
  Country: None (occurrence: None)
  Receive Date: 20111010
  Receipt Date: 20111005
  Transmission Date: 20120403
  Serious: Yes (Death)
  Sender: FDA-Public Use
  Company Number: US-PFIZER INC-2011131441

PATIENT
  Sex: Female
  Weight: 120 kg

DRUGS (18)
  1. LIDODERM [Concomitant]
     Indication: BACK PAIN
     Dosage: 5%, AS NEEDED
     Route: 061
     Dates: start: 20110513, end: 20110608
  2. LIDODERM [Concomitant]
     Indication: MUSCULOSKELETAL CHEST PAIN
  3. PRAVASTATIN [Concomitant]
     Indication: HYPERLIPIDAEMIA
     Dosage: 40 MG, 1X/DAY
     Route: 048
     Dates: start: 20110606
  4. MAGNESIUM OXIDE [Concomitant]
     Indication: HYPOMAGNESAEMIA
     Dosage: 400 MG, 2X/DAY
     Route: 048
     Dates: start: 20110527
  5. ZOLOFT [Concomitant]
     Indication: DEPRESSION
     Dosage: 75 MG, 1X/DAY
     Route: 048
     Dates: start: 20060101
  6. JANUMET [Concomitant]
     Indication: TYPE 2 DIABETES MELLITUS
     Dosage: 1 DF (TABLET), 2X/DAY
     Route: 048
     Dates: start: 20090101
  7. OXYCODONE [Concomitant]
     Indication: MUSCULOSKELETAL CHEST PAIN
  8. MICARDIS [Concomitant]
     Indication: HYPERTENSION
     Dosage: 80 MG, 1X/DAY
     Route: 048
     Dates: start: 20060101
  9. SIMVASTATIN [Concomitant]
     Indication: HYPERLIPIDAEMIA
     Dosage: 40 MG, 1X/DAY
     Route: 048
     Dates: start: 20060101, end: 20110523
  10. FENTANYL [Concomitant]
     Indication: BACK PAIN
     Dosage: 25 UG, EVERY 72 HOURS
     Route: 061
     Dates: start: 20110608
  11. LYRICA [Concomitant]
     Indication: BACK PAIN
     Dosage: 150 MG, 2X/DAY
     Route: 048
     Dates: start: 20110513
  12. LYRICA [Concomitant]
     Indication: MUSCULOSKELETAL CHEST PAIN
  13. ATENOLOL [Concomitant]
     Indication: HYPERTENSION
     Dosage: 100 MG, 1X/DAY
     Route: 048
     Dates: start: 19910101
  14. OXYCODONE [Concomitant]
     Indication: BACK PAIN
     Dosage: 5 MG, AS NEEDED
     Route: 048
     Dates: start: 20110513
  15. FENTANYL [Concomitant]
     Indication: MUSCULOSKELETAL CHEST PAIN
  16. CRIZOTINIB [Suspect]
     Indication: NON-SMALL CELL LUNG CANCER
     Dosage: 250 MG, 2X/DAY
     Route: 048
     Dates: start: 20110527, end: 20110611
  17. MAXZIDE [Concomitant]
     Indication: HYPERTENSION
     Dosage: 1 DF (TABLET), 1X/DAY
     Route: 048
     Dates: start: 20091201
  18. POTASSIUM [Concomitant]
     Indication: SUPPLEMENTATION THERAPY
     Dosage: 10 MEQ, 1X/DAY
     Route: 048
     Dates: start: 20091201

REACTIONS (1)
  - DEATH [None]
